FAERS Safety Report 8588671-X (Version None)
Quarter: 2012Q3

REPORT INFORMATION
  Report Type: 
  Country: None (occurrence: None)
  Receive Date: 20120813
  Receipt Date: 20120801
  Transmission Date: 20120928
  Serious: Yes (Hospitalization)
  Sender: FDA-Public Use
  Company Number: US-BAYER-2012-078980

PATIENT
  Age: 19 Year
  Sex: Female
  Weight: 59.683 kg

DRUGS (4)
  1. YASMIN [Suspect]
     Dosage: UNK
     Dates: start: 20040101, end: 20050101
  2. MERCET [Concomitant]
  3. FOLIC ACID [Concomitant]
  4. DROSPIRENONE AND ETHINYL ESTRADIOL [Suspect]
     Dosage: UNK
     Dates: start: 20040101, end: 20050101

REACTIONS (1)
  - PULMONARY EMBOLISM [None]
